FAERS Safety Report 9368921 (Version 4)
Quarter: 2013Q4

REPORT INFORMATION
  Report Type: Report from Study
  Country: MX (occurrence: MX)
  Receive Date: 20130626
  Receipt Date: 20131025
  Transmission Date: 20140711
  Serious: No
  Sender: FDA-Public Use
  Company Number: MX-ROCHE-1241556

PATIENT
  Age: 48 Year
  Sex: Female
  Weight: 55 kg

DRUGS (4)
  1. TOCILIZUMAB [Suspect]
     Indication: RHEUMATOID ARTHRITIS
     Route: 042
     Dates: start: 20120924
  2. HYDROXYCHLOROQUINE [Concomitant]
     Route: 048
     Dates: start: 19800626
  3. AZATHIOPRINE [Concomitant]
     Route: 048
     Dates: start: 20110816
  4. DICLOFENAC [Concomitant]
     Route: 065
     Dates: start: 20100111

REACTIONS (1)
  - Lymphadenopathy [Not Recovered/Not Resolved]
